FAERS Safety Report 5656621-1 (Version None)
Quarter: 2008Q1

REPORT INFORMATION
  Report Type: 
  Country: None (occurrence: None)
  Receive Date: 20080307
  Receipt Date: 20080307
  Transmission Date: 20080703
  Serious: Yes (Other)
  Sender: FDA-Public Use
  Company Number: None

PATIENT
  Sex: Male

DRUGS (10)
  1. REVLIMID [Suspect]
     Indication: MYELODYSPLASTIC SYNDROME
     Dosage: 10MG DAILY 21D/28D PO
     Route: 048
  2. ASPIRIN [Concomitant]
  3. ATENOLOL [Concomitant]
  4. ALBUTEROL [Concomitant]
  5. VITAMIN B-12 [Concomitant]
  6. MULTI-VITAMIN [Concomitant]
  7. FUROSEMIDE [Concomitant]
  8. OXYBUTYNIN CHLORIDE [Concomitant]
  9. NOVOLIN 50/50 [Concomitant]
  10. DOCUSATE SODIUM [Concomitant]

REACTIONS (1)
  - THROMBOCYTOPENIA [None]
